FAERS Safety Report 10855523 (Version 1)
Quarter: 2015Q1

REPORT INFORMATION
  Report Type: Spontaneous
  Country: AU (occurrence: None)
  Receive Date: 20150218
  Receipt Date: 20150218
  Transmission Date: 20150721
  Serious: No
  Sender: FDA-Public Use
  Company Number: None

PATIENT
  Age: 65 Year

DRUGS (6)
  1. IRBESARTAN. [Concomitant]
     Active Substance: IRBESARTAN
  2. KRILL OIL [Concomitant]
     Active Substance: DIETARY SUPPLEMENT
  3. CRANBERRY. [Concomitant]
     Active Substance: CRANBERRY
  4. PRISTIQ EXTENDED-RELEASE [Suspect]
     Active Substance: DESVENLAFAXINE SUCCINATE
     Indication: DEPRESSION
     Dosage: 1 PILL. ONCE DAILY, TAKEN BY MOUTH
     Route: 048
  5. NOTEN [Concomitant]
     Active Substance: ATENOLOL
  6. COQ10 [Concomitant]
     Active Substance: UBIDECARENONE

REACTIONS (12)
  - Pruritus [None]
  - Crying [None]
  - Insomnia [None]
  - Nightmare [None]
  - Nausea [None]
  - Hyperhidrosis [None]
  - Paraesthesia [None]
  - Dyskinesia [None]
  - Feeling abnormal [None]
  - Panic attack [None]
  - Dizziness [None]
  - Tremor [None]

NARRATIVE: CASE EVENT DATE: 20150214
